FAERS Safety Report 25942127 (Version 1)
Quarter: 2025Q4

REPORT INFORMATION
  Report Type: Report from Study
  Country: US (occurrence: US)
  Receive Date: 20251020
  Receipt Date: 20251020
  Transmission Date: 20260117
  Serious: Yes (Hospitalization, Other)
  Sender: GILEAD
  Company Number: US-GILEAD-2025-0733015

PATIENT
  Age: 65 Year
  Sex: Female

DRUGS (3)
  1. AMBRISENTAN [Suspect]
     Active Substance: AMBRISENTAN
     Indication: Pulmonary arterial hypertension
     Dosage: 10MG BY MOUTH 1 TIME A DAY
     Route: 048
     Dates: start: 201611
  2. REMODULIN [Suspect]
     Active Substance: TREPROSTINIL
     Indication: Pulmonary arterial hypertension
     Dosage: 101.01NG/KG/MIN UNDER THE SKIN CONTINUOUSLY
     Route: 058
     Dates: start: 202205
  3. WINREVAIR [Concomitant]
     Active Substance: SOTATERCEPT-CSRK
     Dosage: UNKNOWN

REACTIONS (1)
  - Injection site abscess [Recovering/Resolving]
